FAERS Safety Report 25267618 (Version 1)
Quarter: 2025Q2

REPORT INFORMATION
  Report Type: Spontaneous
  Country: IN (occurrence: IN)
  Receive Date: 20250505
  Receipt Date: 20250505
  Transmission Date: 20250717
  Serious: Yes (Life-Threatening, Hospitalization, Disabling)
  Sender: MACLEODS
  Company Number: IN-MLMSERVICE-20250417-PI484316-00291-1

PATIENT

DRUGS (1)
  1. ROSUVASTATIN [Suspect]
     Active Substance: ROSUVASTATIN
     Indication: Vascular calcification
     Dosage: HIGH-DOSE
     Route: 065

REACTIONS (2)
  - Muscle necrosis [Recovering/Resolving]
  - Myositis [Recovering/Resolving]
